FAERS Safety Report 10081895 (Version 1)
Quarter: 2014Q2

REPORT INFORMATION
  Report Type: Spontaneous
  Country: US (occurrence: None)
  Receive Date: 20140415
  Receipt Date: 20140415
  Transmission Date: 20141212
  Serious: Yes (Other)
  Sender: FDA-Public Use
  Company Number: None

PATIENT
  Age: 80 Year
  Sex: Male

DRUGS (1)
  1. IMBRUVICA 140 MG TAKE 3 CAPS ONCE DAILY [Suspect]
     Dosage: 140 MG TAKE 3 DAILY DAILY ORAL
     Route: 048
     Dates: start: 20140219

REACTIONS (3)
  - Dyspnoea [None]
  - Diarrhoea [None]
  - Fluid retention [None]
